FAERS Safety Report 4689760-2 (Version None)
Quarter: 2005Q2

REPORT INFORMATION
  Report Type: 
  Country: None (occurrence: None)
  Receive Date: 20050614
  Receipt Date: 20050601
  Transmission Date: 20051028
  Serious: Yes (Hospitalization)
  Sender: FDA-Public Use
  Company Number: US-AMGEN-US137021

PATIENT

DRUGS (1)
  1. PROCRIT [Suspect]
     Indication: ANAEMIA
     Route: 030

REACTIONS (2)
  - HOSPITALISATION [None]
  - INCORRECT ROUTE OF DRUG ADMINISTRATION [None]
